FAERS Safety Report 5545294-4 (Version None)
Quarter: 2007Q4

REPORT INFORMATION
  Report Type: 
  Country: None (occurrence: None)
  Receive Date: 20071211
  Receipt Date: 20071205
  Transmission Date: 20080405
  Serious: Yes (Hospitalization)
  Sender: FDA-Public Use
  Company Number: PHNR2007AU02152

PATIENT
  Age: 51 Year
  Sex: Female

DRUGS (2)
  1. CLARITIN [Concomitant]
     Dates: start: 20070515
  2. EXJADE [Suspect]
     Indication: THALASSAEMIA
     Dosage: 500 MG, DAILY
     Route: 048
     Dates: start: 20070208, end: 20070210

REACTIONS (3)
  - ABDOMINAL PAIN [None]
  - DIARRHOEA [None]
  - EYE SWELLING [None]
